FAERS Safety Report 5574149-4 (Version None)
Quarter: 2007Q4

REPORT INFORMATION
  Report Type: 
  Country: None (occurrence: None)
  Receive Date: 20071221
  Receipt Date: 20071214
  Transmission Date: 20080405
  Serious: Yes (Hospitalization, Other)
  Sender: FDA-Public Use
  Company Number: 2007S1013436

PATIENT
  Age: 78 Year
  Sex: Female

DRUGS (3)
  1. METOPROLOL TARTRATE [Suspect]
     Indication: TACHYCARDIA
     Dosage: 200 MG; DAILY; ORAL
     Route: 048
     Dates: start: 20070515
  2. FLECAINIDE ACETATE [Suspect]
     Indication: TACHYCARDIA
     Dosage: ORAL
     Route: 048
     Dates: end: 20070615
  3. COUMADIN [Concomitant]

REACTIONS (8)
  - BLOOD PRESSURE DECREASED [None]
  - DRUG INTERACTION [None]
  - DYSPNOEA [None]
  - FATIGUE [None]
  - HEART RATE DECREASED [None]
  - PULMONARY OEDEMA [None]
  - TACHYCARDIA [None]
  - VISUAL ACUITY REDUCED [None]
